FAERS Safety Report 10891617 (Version 2)
Quarter: 2015Q1

REPORT INFORMATION
  Report Type: Spontaneous
  Country: FR (occurrence: FR)
  Receive Date: 20150306
  Receipt Date: 20150325
  Transmission Date: 20150721
  Serious: Yes (Death, Life-Threatening, Other)
  Sender: FDA-Public Use
  Company Number: FR-GLAXOSMITHKLINE-FR2015GSK027722

PATIENT
  Age: 60 Year
  Sex: Female

DRUGS (16)
  1. CALCIDOSE [Suspect]
     Active Substance: CALCIUM CARBONATE
     Indication: PRODUCT USED FOR UNKNOWN INDICATION
     Dosage: 500 MG, 1D
     Route: 048
     Dates: end: 20150214
  2. ENDOXAN [Suspect]
     Active Substance: CYCLOPHOSPHAMIDE
     Dosage: 60 UNK, UNK
     Route: 042
     Dates: start: 20150208, end: 20150209
  3. EMEND [Suspect]
     Active Substance: APREPITANT
     Dosage: 1 UNK, 1D
     Route: 048
  4. ENDOXAN [Suspect]
     Active Substance: CYCLOPHOSPHAMIDE
     Indication: PRODUCT USED FOR UNKNOWN INDICATION
     Dosage: 60 MG/KG, UNK
     Route: 042
     Dates: start: 20150208, end: 20150209
  5. RIVOTRIL [Suspect]
     Active Substance: CLONAZEPAM
     Indication: PRODUCT USED FOR UNKNOWN INDICATION
     Dosage: 2 MG, 1D
     Route: 048
     Dates: start: 20150205, end: 20150207
  6. EMEND [Suspect]
     Active Substance: APREPITANT
     Indication: PRODUCT USED FOR UNKNOWN INDICATION
     Dosage: 1 UNK, 1D
     Route: 048
     Dates: start: 20150202, end: 20150211
  7. ONDANSETRON [Suspect]
     Active Substance: ONDANSETRON
     Indication: PRODUCT USED FOR UNKNOWN INDICATION
     Dosage: 8 MG, TID
     Route: 042
     Dates: start: 20150203, end: 20150212
  8. UROMITEXAN [Suspect]
     Active Substance: MESNA
     Indication: PRODUCT USED FOR UNKNOWN INDICATION
     Dosage: 60 UNK, UNK
     Route: 042
     Dates: start: 20150208, end: 20150209
  9. TEPADINA [Suspect]
     Active Substance: THIOTEPA
     Indication: PRODUCT USED FOR UNKNOWN INDICATION
     Dosage: 450 MG, 1D
     Route: 042
     Dates: start: 20150202, end: 20150204
  10. BUSILVEX [Suspect]
     Active Substance: BUSULFAN
     Indication: PRODUCT USED FOR UNKNOWN INDICATION
     Dosage: 6 MG, 1D
     Route: 042
     Dates: start: 20150205, end: 20150207
  11. ONDENSETRON [Suspect]
     Active Substance: ONDANSETRON
     Dosage: 8 MG, TID
     Route: 042
     Dates: start: 20150203, end: 20150208
  12. ZELITREX [Suspect]
     Active Substance: VALACYCLOVIR HYDROCHLORIDE
     Indication: PRODUCT USED FOR UNKNOWN INDICATION
     Dosage: 500 MG, 1D
     Route: 048
     Dates: start: 20150202, end: 20150215
  13. ESOMEPRAZOLE [Suspect]
     Active Substance: ESOMEPRAZOLE
     Indication: PRODUCT USED FOR UNKNOWN INDICATION
     Dosage: 40 MG, 1D
     Route: 048
     Dates: end: 20150214
  14. AERIUS [Suspect]
     Active Substance: DESLORATADINE
     Indication: PRODUCT USED FOR UNKNOWN INDICATION
     Dosage: 5 MG, 1D
     Route: 048
     Dates: end: 20150214
  15. GLUCIDION [Suspect]
     Active Substance: GLUCOSE, LIQUID\POTASSIUM CHLORIDE\SODIUM CHLORIDE
     Indication: PRODUCT USED FOR UNKNOWN INDICATION
     Dosage: UNK
     Route: 042
     Dates: start: 20150201, end: 20150212
  16. ESOMEPRAZOLE [Suspect]
     Active Substance: ESOMEPRAZOLE
     Dosage: 40 MG, 1D
     Route: 048
     Dates: end: 20150214

REACTIONS (5)
  - Multi-organ failure [Fatal]
  - Candida sepsis [Fatal]
  - Septic shock [Fatal]
  - Mucosal inflammation [Fatal]
  - Dermatitis bullous [Fatal]

NARRATIVE: CASE EVENT DATE: 201502
